FAERS Safety Report 18468417 (Version 2)
Quarter: 2021Q2

REPORT INFORMATION
  Report Type: Spontaneous
  Country: FR (occurrence: FR)
  Receive Date: 20201105
  Receipt Date: 20210621
  Transmission Date: 20210717
  Serious: Yes (Other)
  Sender: FDA-Public Use
  Company Number: NVSC2020FR292033

PATIENT
  Sex: Male

DRUGS (14)
  1. AMOXICILLIN AND CLAVULANATE POTASSIUM [Suspect]
     Active Substance: AMOXICILLIN\CLAVULANATE POTASSIUM
     Indication: TOXIC SKIN ERUPTION
  2. IDELALISIB [Suspect]
     Active Substance: IDELALISIB
     Dosage: UNK UNK, BID
     Route: 048
     Dates: start: 20190629, end: 20190704
  3. LOCOID [Concomitant]
     Active Substance: HYDROCORTISONE BUTYRATE
     Indication: PRODUCT USED FOR UNKNOWN INDICATION
     Dosage: UNK
     Route: 065
     Dates: start: 20190820
  4. BACTRIM [Concomitant]
     Active Substance: SULFAMETHOXAZOLE\TRIMETHOPRIM
     Indication: PRODUCT USED FOR UNKNOWN INDICATION
     Dosage: UNK (UNK)
     Route: 065
     Dates: start: 20190304, end: 20190521
  5. IDELALISIB [Suspect]
     Active Substance: IDELALISIB
     Dosage: UNK UNK, BID
     Route: 048
     Dates: start: 20190821, end: 20190830
  6. LEVOTHYROX [Concomitant]
     Active Substance: LEVOTHYROXINE
     Indication: PRODUCT USED FOR UNKNOWN INDICATION
     Dosage: UNK
     Route: 065
     Dates: start: 20000615
  7. WELLVONE [Suspect]
     Active Substance: ATOVAQUONE
     Indication: ANTIFUNGAL PROPHYLAXIS
     Dosage: 750 MG
     Route: 048
     Dates: start: 20190702, end: 20190905
  8. IDELALISIB [Suspect]
     Active Substance: IDELALISIB
     Dosage: 100 MG, QD
     Route: 048
     Dates: start: 20190705, end: 20190726
  9. L THYROXIN [Concomitant]
     Active Substance: LEVOTHYROXINE SODIUM
     Indication: PRODUCT USED FOR UNKNOWN INDICATION
     Dosage: UNK
     Route: 065
     Dates: start: 20000615
  10. IDELALISIB [Suspect]
     Active Substance: IDELALISIB
     Dosage: 300 MG, QD
     Route: 048
     Dates: start: 20190727, end: 20190820
  11. IDELALISIB [Suspect]
     Active Substance: IDELALISIB
     Dosage: UNK UNK, BID
     Route: 048
     Dates: start: 20190626, end: 20200726
  12. AMOXICILLIN AND CLAVULANATE POTASSIUM [Suspect]
     Active Substance: AMOXICILLIN\CLAVULANATE POTASSIUM
     Indication: COUGH
     Dosage: UNK
     Route: 065
  13. DESLORATADINE. [Concomitant]
     Active Substance: DESLORATADINE
     Indication: PRODUCT USED FOR UNKNOWN INDICATION
     Dosage: UNK
     Route: 065
     Dates: start: 20190517
  14. IDELALISIB [Suspect]
     Active Substance: IDELALISIB
     Indication: B-CELL LYMPHOMA REFRACTORY
     Dosage: 300 MG, QD
     Route: 065
     Dates: start: 20190304, end: 20190521

REACTIONS (17)
  - Pneumonia [Recovered/Resolved]
  - Petechiae [Recovered/Resolved with Sequelae]
  - Dysgeusia [Recovered/Resolved]
  - Rash papular [Unknown]
  - Constipation [Recovered/Resolved]
  - Productive cough [Recovered/Resolved]
  - Melanocytic naevus [Recovered/Resolved with Sequelae]
  - Fatigue [Recovered/Resolved]
  - Mucosal inflammation [Recovered/Resolved]
  - Disease recurrence [Unknown]
  - Dyspnoea [Recovered/Resolved]
  - Toxic skin eruption [Recovered/Resolved]
  - Weight decreased [Recovered/Resolved]
  - Pyrexia [Recovered/Resolved]
  - Dyspepsia [Recovered/Resolved]
  - Decreased appetite [Unknown]
  - Nausea [Unknown]

NARRATIVE: CASE EVENT DATE: 20190404
